FAERS Safety Report 18077908 (Version 1)
Quarter: 2020Q3

REPORT INFORMATION
  Report Type: Report from Study
  Country: None (occurrence: US)
  Receive Date: 20200727
  Receipt Date: 20200727
  Transmission Date: 20201103
  Serious: No
  Sender: FDA-Public Use
  Company Number: US-ABBVIE-19S-163-2810287-00

PATIENT
  Sex: Female
  Weight: 42.2 kg

DRUGS (1)
  1. MARINOL [Suspect]
     Active Substance: DRONABINOL
     Indication: CYSTIC FIBROSIS
     Route: 048

REACTIONS (3)
  - Off label use [Unknown]
  - Decreased appetite [Unknown]
  - Malnutrition [Unknown]
